FAERS Safety Report 7037071-2 (Version None)
Quarter: 2010Q4

REPORT INFORMATION
  Report Type: 
  Country: None (occurrence: None)
  Receive Date: 20101011
  Receipt Date: 20100927
  Transmission Date: 20110411
  Serious: Yes (Hospitalization, Other)
  Sender: FDA-Public Use
  Company Number: PHHY2010BR65738

PATIENT
  Sex: Female

DRUGS (1)
  1. EXFORGE [Suspect]
     Indication: HYPERTENSION
     Dosage: 160/5 MG (1 TABLET DAILY)
     Route: 048

REACTIONS (5)
  - ANGINA PECTORIS [None]
  - ANGIOPLASTY [None]
  - ARTERIAL OCCLUSIVE DISEASE [None]
  - CATHETERISATION CARDIAC [None]
  - CHEST PAIN [None]
